FAERS Safety Report 5186335-6 (Version None)
Quarter: 2006Q4

REPORT INFORMATION
  Report Type: 
  Country: None (occurrence: None)
  Receive Date: 20061213
  Receipt Date: 20061204
  Transmission Date: 20070319
  Serious: Yes (Other)
  Sender: FDA-Public Use
  Company Number: 2006097238

PATIENT
  Age: 66 Year
  Sex: Female
  Weight: 70 kg

DRUGS (7)
  1. GABAPENTIN [Suspect]
     Indication: PAIN
     Dosage: ORAL
     Route: 048
     Dates: start: 20051101, end: 20060210
  2. PREGABALIN (PREGABALIN) [Suspect]
     Indication: PAIN
     Dosage: 150 MG (75 MG, 2 IN 1  D), ORAL
     Route: 048
     Dates: start: 20050210, end: 20050224
  3. AZITHROMYCIN [Concomitant]
  4. BENDROFLUAZIDE (BENDROFLUMETHIAZIDE) [Concomitant]
  5. CODEINE SUL TAB [Concomitant]
  6. LATANOPROST (LATANAPROST) [Concomitant]
  7. ACETAMINOPHEN [Concomitant]

REACTIONS (6)
  - DEPRESSION [None]
  - DIZZINESS [None]
  - HYPERHIDROSIS [None]
  - SENSORY DISTURBANCE [None]
  - SLEEP DISORDER [None]
  - SUICIDAL IDEATION [None]
